FAERS Safety Report 4816171-9 (Version None)
Quarter: 2005Q4

REPORT INFORMATION
  Report Type: 
  Country: None (occurrence: None)
  Receive Date: 20051026
  Receipt Date: 20051011
  Transmission Date: 20060501
  Serious: Yes (Hospitalization)
  Sender: FDA-Public Use
  Company Number: DEU-2005-0001716

PATIENT
  Age: 80 Year
  Sex: Female
  Weight: 67 kg

DRUGS (11)
  1. OXYCODONE HCL [Suspect]
     Indication: BACK PAIN
     Dosage: SEE IMAGE
     Route: 048
     Dates: start: 20050824, end: 20050921
  2. OXYCODONE HCL [Suspect]
     Indication: BACK PAIN
     Dosage: SEE IMAGE
     Route: 048
     Dates: start: 20050928, end: 20050929
  3. OXYCODONE HCL [Suspect]
     Indication: BACK PAIN
     Dosage: ORAL
     Route: 048
  4. SEREVENT [Concomitant]
  5. SANASTHMYL (BECLOMETASONE DIPROPIONATE) [Concomitant]
  6. AMITRIPTYLINE HYDROCHLORIDE [Concomitant]
  7. MOVICOL (SODIUM BICARBONATE, POTASSIUM CHLORIDE, SODIUM CHLORIDE, MACR [Concomitant]
  8. METOCLOPRAMIDE [Concomitant]
  9. PANTOPRAZOLE SODIUM [Concomitant]
  10. ANTI-ASTHMATICS [Concomitant]
  11. OXIS (FORMOTEROL) [Concomitant]

REACTIONS (4)
  - ANOREXIA [None]
  - ASTHENIA [None]
  - GENERAL PHYSICAL HEALTH DETERIORATION [None]
  - HYPONATRAEMIA [None]
